FAERS Safety Report 7411013-X (Version None)
Quarter: 2011Q2

REPORT INFORMATION
  Report Type: 
  Country: None (occurrence: None)
  Receive Date: 20110404
  Receipt Date: 20110322
  Transmission Date: 20111010
  Serious: Yes (Disabling)
  Sender: FDA-Public Use
  Company Number: MIN-00713

PATIENT
  Age: 73 Year

DRUGS (5)
  1. REDUCED-FLUENCE (25MJ/CM2) PDT WITH VERTEPORFIN [Suspect]
     Indication: MACULAR DEGENERATION
     Dosage: SINGLE CYCLE
  2. RANIBIZUMAB 0.3MG/0.05ML [Suspect]
     Indication: MACULAR DEGENERATION
     Dosage: INTAVITREAL INJECTION AT BASELINE, MONTH 3, MONTH 5
     Route: 043
  3. RANIBIZUMAB 0.3MG/0.05ML [Suspect]
     Indication: MACULAR DEGENERATION
     Dosage: INTAVITREAL INJECTION AT BASELINE, MONTH 3, MONTH 5
     Route: 043
  4. MINOCYCLINE, 100MG [Suspect]
     Indication: MACULAR DEGENERATION
     Dosage: 100MG DAILY, ORAL
     Route: 048
  5. DEXAMETHASONE [Suspect]
     Indication: MACULAR DEGENERATION
     Dosage: 200UG, INTRAVITREAL INJECTION AT BASELINE
     Route: 043

REACTIONS (2)
  - SUBRETINAL FIBROSIS [None]
  - BLINDNESS [None]
